FAERS Safety Report 13453017 (Version 2)
Quarter: 2017Q2

REPORT INFORMATION
  Report Type: Spontaneous
  Country: RU (occurrence: RU)
  Receive Date: 20170418
  Receipt Date: 20170428
  Transmission Date: 20170830
  Serious: Yes (Hospitalization)
  Sender: FDA-Public Use
  Company Number: RU-GALDERMA-RU17002539

PATIENT
  Age: 18 Year
  Sex: Female

DRUGS (2)
  1. SOOLANTRA [Suspect]
     Active Substance: IVERMECTIN
     Indication: PAPULOPUSTULAR ROSACEA
     Dosage: 1%
     Route: 061
     Dates: start: 20170306, end: 20170323
  2. KVINISOL [Concomitant]
     Indication: DEMODICIDOSIS
     Route: 048

REACTIONS (2)
  - Paraesthesia [Recovered/Resolved]
  - Angioedema [Recovered/Resolved]

NARRATIVE: CASE EVENT DATE: 20170322
